FAERS Safety Report 9054181 (Version 2)
Quarter: 2013Q1

REPORT INFORMATION
  Report Type: Spontaneous
  Country: US (occurrence: US)
  Receive Date: 20130206
  Receipt Date: 20130206
  Transmission Date: 20140127
  Serious: Yes (Hospitalization, Other)
  Sender: FDA-Public Use
  Company Number: US-ROCHE-1182588

PATIENT
  Age: 48 None
  Sex: Male

DRUGS (4)
  1. PEGASYS [Suspect]
     Indication: HEPATITIS C
     Route: 058
     Dates: start: 20121213
  2. RIBASPHERE [Suspect]
     Indication: HEPATITIS C
     Dosage: DAILY DIVIDED DOSE
     Route: 048
     Dates: start: 20121214
  3. RIBASPHERE [Suspect]
     Dosage: DOSE REDUCED TO 600/400 DAILY
     Route: 065
     Dates: start: 20120116
  4. TELAPREVIR [Concomitant]
     Indication: HEPATITIS C
     Dosage: THREE TIMES A DAY
     Route: 065

REACTIONS (4)
  - Dysuria [Unknown]
  - Renal failure [Unknown]
  - Abdominal distension [Unknown]
  - Renal pain [Unknown]
